FAERS Safety Report 11608792 (Version 1)
Quarter: 2015Q4

REPORT INFORMATION
  Report Type: Spontaneous
  Country: DE (occurrence: DE)
  Receive Date: 20151007
  Receipt Date: 20151007
  Transmission Date: 20160304
  Serious: Yes (Other)
  Sender: FDA-Public Use
  Company Number: DE-PFIZER INC-2015326903

PATIENT
  Age: 71 Year
  Sex: Male

DRUGS (1)
  1. SORTIS [Suspect]
     Active Substance: ATORVASTATIN
     Dosage: 40 MG, UNK

REACTIONS (2)
  - Cardiac failure [Unknown]
  - Myopathy [Unknown]
